FAERS Safety Report 6335455-9 (Version None)
Quarter: 2009Q3

REPORT INFORMATION
  Report Type: 
  Country: None (occurrence: None)
  Receive Date: 20090831
  Receipt Date: 20090821
  Transmission Date: 20100115
  Serious: Yes (Other)
  Sender: FDA-Public Use
  Company Number: DE-BAXTER-2009BH013139

PATIENT
  Age: 69 Year
  Sex: Female

DRUGS (12)
  1. CYCLOPHOSPHAMIDE [Suspect]
     Indication: ADENOCARCINOMA
     Route: 042
  2. MESNA [Suspect]
     Indication: DRUG USE FOR UNKNOWN INDICATION
     Route: 065
  3. CISPLATIN [Suspect]
     Indication: ADENOCARCINOMA
     Route: 042
  4. DOXORUBICIN HYDROCHLORIDE [Suspect]
     Indication: ADENOCARCINOMA
     Route: 042
  5. SALINE [Concomitant]
     Indication: PROPHYLAXIS AGAINST DEHYDRATION
     Route: 065
  6. ELECTROLYTE SOLUTIONS [Concomitant]
     Indication: PROPHYLAXIS AGAINST DEHYDRATION
     Route: 065
  7. APREPITANT [Concomitant]
     Indication: PROPHYLAXIS OF NAUSEA AND VOMITING
     Route: 065
  8. DEXAMETHASONE [Concomitant]
     Indication: PROPHYLAXIS OF NAUSEA AND VOMITING
     Route: 065
  9. GRANISETRON HCL [Concomitant]
     Indication: PROPHYLAXIS OF NAUSEA AND VOMITING
     Route: 065
  10. METROMIZOLE [Concomitant]
     Indication: ANALGESIA
     Route: 065
  11. TILIDINE [Concomitant]
     Indication: ANALGESIA
     Route: 065
  12. NALOXONE [Concomitant]
     Indication: ANALGESIA
     Route: 065

REACTIONS (1)
  - HYPONATRAEMIA [None]
